FAERS Safety Report 7737598-1 (Version None)
Quarter: 2011Q3

REPORT INFORMATION
  Report Type: 
  Country: None (occurrence: None)
  Receive Date: 20110908
  Receipt Date: 20110901
  Transmission Date: 20111222
  Serious: Yes (Disabling)
  Sender: FDA-Public Use
  Company Number: US-MERCK-1109USA00174

PATIENT
  Sex: Male

DRUGS (1)
  1. PROPECIA [Suspect]
     Indication: ALOPECIA
     Route: 048
     Dates: start: 20061001

REACTIONS (8)
  - ERECTILE DYSFUNCTION [None]
  - LIBIDO DECREASED [None]
  - DEPRESSION [None]
  - COGNITIVE DISORDER [None]
  - TESTICULAR PAIN [None]
  - ANXIETY [None]
  - SEXUAL DYSFUNCTION [None]
  - SEMEN VOLUME DECREASED [None]
